FAERS Safety Report 21941826 (Version 1)
Quarter: 2023Q1

REPORT INFORMATION
  Report Type: Spontaneous
  Country: DE (occurrence: DE)
  Receive Date: 20230202
  Receipt Date: 20230202
  Transmission Date: 20230417
  Serious: Yes (Life-Threatening, Hospitalization, Other)
  Sender: FDA-Public Use
  Company Number: DE-CELLTRION INC.-2023DE001536

PATIENT

DRUGS (10)
  1. RITUXIMAB [Suspect]
     Active Substance: RITUXIMAB
     Indication: Interstitial lung disease
     Dosage: 2X 1000MG
     Route: 042
  2. RITUXIMAB [Suspect]
     Active Substance: RITUXIMAB
     Dosage: 2X 1000MG
     Route: 042
  3. PREDNISOLONE [Suspect]
     Active Substance: PREDNISOLONE
     Indication: Interstitial lung disease
     Dosage: 500 MILLIGRAM, PER DAY FOR 3 DAYS FOLLOWED BY REDUCTION TO A MEDIUM DAILY
     Route: 042
  4. PREDNISOLONE [Suspect]
     Active Substance: PREDNISOLONE
     Dosage: PREDNISOLONE COULD BE REDUCED TO A DAILY DOSAGE OF 5 MG
     Route: 042
  5. CYCLOPHOSPHAMIDE [Suspect]
     Active Substance: CYCLOPHOSPHAMIDE
     Indication: Interstitial lung disease
     Dosage: 1000 MG
     Route: 042
  6. TOFACITINIB [Suspect]
     Active Substance: TOFACITINIB
     Indication: Interstitial lung disease
     Dosage: 10 MILLIGRAM, PER DAY FOR 3 DAYS
  7. MYCOPHENOLATE MOFETIL [Suspect]
     Active Substance: MYCOPHENOLATE MOFETIL
     Indication: Interstitial lung disease
     Dosage: 2 GRAM, PER DAY
  8. CYCLOSPORINE [Suspect]
     Active Substance: CYCLOSPORINE
     Indication: Interstitial lung disease
     Dosage: GRADUALLY INCREASE OF DOSAGE UP TO 500 MG/D
  9. ANAKINRA [Suspect]
     Active Substance: ANAKINRA
     Indication: Interstitial lung disease
     Dosage: 100 MG SUBCUTANEOUSLY/D
     Route: 058
  10. HUMAN IMMUNOGLOBULIN G [Suspect]
     Active Substance: HUMAN IMMUNOGLOBULIN G
     Indication: Interstitial lung disease
     Dosage: 2 GRAM PER KILOGRAM
     Route: 042

REACTIONS (5)
  - Acute hepatic failure [Recovering/Resolving]
  - Pseudomonas infection [Recovered/Resolved]
  - Sepsis [Recovered/Resolved]
  - Bacterial tracheitis [Recovered/Resolved]
  - Drug ineffective for unapproved indication [Unknown]
